FAERS Safety Report 12373191 (Version 1)
Quarter: 2016Q2

REPORT INFORMATION
  Report Type: Spontaneous
  Country: US (occurrence: US)
  Receive Date: 20160516
  Receipt Date: 20160516
  Transmission Date: 20160815
  Serious: No
  Sender: FDA-Public Use
  Company Number: US-BAYER-2016-093940

PATIENT
  Sex: Female
  Weight: 70.3 kg

DRUGS (5)
  1. TYLENOL [CHLORPHENAM MAL,DEXTROMET HBR,PARACET,PSEUDOEPH HCL] [Concomitant]
     Active Substance: ACETAMINOPHEN\CHLORPHENIRAMINE MALEATE\DEXTROMETHORPHAN HYDROBROMIDE\PSEUDOEPHEDRINE HYDROCHLORIDE
     Dosage: UNK
  2. CHLOR-TRIMETON 4HOUR [Suspect]
     Active Substance: CHLORPHENIRAMINE MALEATE
     Indication: PHOTOSENSITIVITY REACTION
     Dosage: 1 DF, PRN
     Route: 048
  3. CHLOR-TRIMETON 4HOUR [Suspect]
     Active Substance: CHLORPHENIRAMINE MALEATE
     Indication: SMOKE SENSITIVITY
  4. CHLOR-TRIMETON 4HOUR [Suspect]
     Active Substance: CHLORPHENIRAMINE MALEATE
     Indication: ARTHROPOD STING
  5. CHLOR-TRIMETON 4HOUR [Suspect]
     Active Substance: CHLORPHENIRAMINE MALEATE
     Indication: ALLERGY TO CHEMICALS

REACTIONS (1)
  - Product use issue [None]
